FAERS Safety Report 17922988 (Version 1)
Quarter: 2020Q2

REPORT INFORMATION
  Report Type: Spontaneous
  Country: US (occurrence: US)
  Receive Date: 20200621
  Receipt Date: 20200621
  Transmission Date: 20200714
  Serious: Yes (Other)
  Sender: FDA-Public Use
  Company Number: None

PATIENT
  Age: 33 Year
  Sex: Female
  Weight: 72.9 kg

DRUGS (1)
  1. REYVOW [Suspect]
     Active Substance: LASMIDITAN
     Indication: HEADACHE
     Dosage: ?          QUANTITY:8 TABLET(S);?
     Route: 048
     Dates: start: 20200620, end: 20200620

REACTIONS (6)
  - Hallucination [None]
  - Feeling hot [None]
  - Lethargy [None]
  - Muscle spasms [None]
  - Gait inability [None]
  - Dizziness [None]

NARRATIVE: CASE EVENT DATE: 20200620
